FAERS Safety Report 13957890 (Version 4)
Quarter: 2018Q1

REPORT INFORMATION
  Report Type: Report from Study
  Country: None (occurrence: US)
  Receive Date: 20170912
  Receipt Date: 20180314
  Transmission Date: 20180508
  Serious: Yes (Other)
  Sender: FDA-Public Use
  Company Number: US-ABBVIE-17K-163-2064533-00

PATIENT
  Age: 35 Year
  Sex: Female

DRUGS (2)
  1. HUMIRA [Suspect]
     Active Substance: ADALIMUMAB
     Indication: PSORIASIS
     Route: 058
     Dates: start: 20170705, end: 20170802
  2. HUMIRA [Suspect]
     Active Substance: ADALIMUMAB
     Indication: PSORIATIC ARTHROPATHY
     Route: 058
     Dates: start: 20170927

REACTIONS (20)
  - Fatigue [Recovered/Resolved]
  - Back pain [Not Recovered/Not Resolved]
  - Peripheral swelling [Unknown]
  - Bronchitis [Recovered/Resolved]
  - Pain in extremity [Unknown]
  - Pain [Unknown]
  - Ligament rupture [Unknown]
  - Sinusitis [Recovered/Resolved]
  - Arthritis [Unknown]
  - Fatigue [Unknown]
  - Joint swelling [Not Recovered/Not Resolved]
  - Tendonitis [Unknown]
  - Drug ineffective [Unknown]
  - Bronchitis [Recovering/Resolving]
  - Inflammation [Unknown]
  - Swelling [Not Recovered/Not Resolved]
  - Sinusitis [Recovering/Resolving]
  - Benign breast neoplasm [Recovered/Resolved]
  - Arthralgia [Not Recovered/Not Resolved]
  - Stress fracture [Unknown]

NARRATIVE: CASE EVENT DATE: 2017
